FAERS Safety Report 5288398-6 (Version None)
Quarter: 2007Q2

REPORT INFORMATION
  Report Type: 
  Country: None (occurrence: None)
  Receive Date: 20070405
  Receipt Date: 20070328
  Transmission Date: 20071010
  Serious: Yes (Hospitalization)
  Sender: FDA-Public Use
  Company Number: IT-AMGEN-UK217447

PATIENT

DRUGS (1)
  1. NEUPOGEN [Suspect]
     Indication: ACUTE MYELOID LEUKAEMIA
     Route: 058

REACTIONS (10)
  - CELLULITIS [None]
  - DRUG TOXICITY [None]
  - LEUKOCYTOSIS [None]
  - MALIGNANT NEOPLASM PROGRESSION [None]
  - MUSCULOSKELETAL PAIN [None]
  - OESOPHAGEAL CANDIDIASIS [None]
  - PNEUMONIA [None]
  - PYREXIA [None]
  - THROMBOCYTOPENIA [None]
  - TOOTH ABSCESS [None]
